FAERS Safety Report 6062819-3 (Version None)
Quarter: 2009Q1

REPORT INFORMATION
  Report Type: 
  Country: None (occurrence: None)
  Receive Date: 20090203
  Receipt Date: 20090123
  Transmission Date: 20090719
  Serious: Yes (Hospitalization)
  Sender: FDA-Public Use
  Company Number: FR-WYE-H07912709

PATIENT
  Age: 72 Year
  Sex: Female

DRUGS (5)
  1. INIPOMP [Suspect]
     Dosage: UNKNOWN
     Dates: start: 20081127, end: 20081201
  2. RISORDAN [Suspect]
     Dosage: UNKNOWN
     Dates: start: 20081127, end: 20081128
  3. ZANIDIP [Suspect]
     Dosage: UNKNOWN
     Dates: start: 20081127, end: 20081128
  4. CLAMOXYL [Suspect]
     Indication: PYREXIA
     Dosage: UNNKNOWN
     Dates: start: 20081118, end: 20081128
  5. KARDEGIC [Suspect]
     Dosage: UNKNOWN
     Dates: start: 20081127

REACTIONS (3)
  - DERMATITIS EXFOLIATIVE [None]
  - PURPURA [None]
  - RASH MACULAR [None]
